FAERS Safety Report 18966034 (Version 1)
Quarter: 2021Q1

REPORT INFORMATION
  Report Type: Spontaneous
  Country: TW (occurrence: TW)
  Receive Date: 20210303
  Receipt Date: 20210303
  Transmission Date: 20210420
  Serious: Yes (Hospitalization)
  Sender: FDA-Public Use
  Company Number: NVSC2021TW045966

PATIENT
  Age: 51 Year
  Sex: Male
  Weight: 75 kg

DRUGS (2)
  1. MEFENAMIC ACID. [Concomitant]
     Active Substance: MEFENAMIC ACID
     Indication: TRIGEMINAL NEURALGIA
     Dosage: 500 MG, QID
     Route: 065
     Dates: start: 20180803
  2. TEGRETOL XR [Suspect]
     Active Substance: CARBAMAZEPINE
     Indication: TRIGEMINAL NEURALGIA
     Dosage: 100 MG, QN
     Route: 048
     Dates: start: 20180803, end: 20180810

REACTIONS (14)
  - Oropharyngeal pain [Recovering/Resolving]
  - Mouth ulceration [Recovering/Resolving]
  - Stevens-Johnson syndrome [Recovering/Resolving]
  - Ocular hyperaemia [Recovering/Resolving]
  - Hypoaesthesia oral [Recovering/Resolving]
  - Eye injury [Recovering/Resolving]
  - Herpes zoster [Recovering/Resolving]
  - Mouth swelling [Recovering/Resolving]
  - Hiccups [Recovering/Resolving]
  - Pharyngeal ulceration [Recovering/Resolving]
  - Pruritus [Recovering/Resolving]
  - Erythema multiforme [Recovering/Resolving]
  - Rash [Recovering/Resolving]
  - Acne [Recovering/Resolving]

NARRATIVE: CASE EVENT DATE: 20180806
